FAERS Safety Report 5104732-1 (Version None)
Quarter: 2006Q3

REPORT INFORMATION
  Report Type: 
  Country: None (occurrence: None)
  Receive Date: 20060911
  Receipt Date: 20060911
  Transmission Date: 20061208
  Serious: Yes (Life-Threatening, Hospitalization, Other)
  Sender: FDA-Public Use
  Company Number: None

PATIENT
  Age: 28 Year
  Sex: Female
  Weight: 53.0709 kg

DRUGS (1)
  1. IMITREX [Suspect]
     Indication: MIGRAINE
     Dosage: STAT INJECTION AS NEEDED
     Dates: start: 19940321, end: 20031104

REACTIONS (14)
  - AMNESIA [None]
  - APPENDICECTOMY [None]
  - BODY TEMPERATURE INCREASED [None]
  - COLITIS ISCHAEMIC [None]
  - CONVULSION [None]
  - GASTROINTESTINAL NECROSIS [None]
  - IATROGENIC INJURY [None]
  - ILL-DEFINED DISORDER [None]
  - INFLUENZA [None]
  - PNEUMONIA [None]
  - PULMONARY OEDEMA [None]
  - RENAL FAILURE [None]
  - SPLENIC RUPTURE [None]
  - STAPHYLOCOCCAL INFECTION [None]
